FAERS Safety Report 6106897-1 (Version None)
Quarter: 2009Q1

REPORT INFORMATION
  Report Type: 
  Country: None (occurrence: None)
  Receive Date: 20090305
  Receipt Date: 20090219
  Transmission Date: 20090719
  Serious: Yes (Life-Threatening, Hospitalization, Other)
  Sender: FDA-Public Use
  Company Number: JPI-P-006182

PATIENT
  Age: 53 Year
  Sex: Female

DRUGS (9)
  1. XYREM [Suspect]
     Indication: NARCOLEPSY
     Dosage: 4.5 GM (2.25 GM, 2 IN 1 D), ORAL; 9 GM (4.5 GM, 2 IN 1 D), ORAL; 4.5 GM (4.5 GM, 1 IN 1 D), ORAL
     Route: 048
     Dates: start: 20090203, end: 20090213
  2. XYREM [Suspect]
     Indication: NARCOLEPSY
     Dosage: 4.5 GM (2.25 GM, 2 IN 1 D), ORAL; 9 GM (4.5 GM, 2 IN 1 D), ORAL; 4.5 GM (4.5 GM, 1 IN 1 D), ORAL
     Route: 048
     Dates: start: 20090214, end: 20090214
  3. XYREM [Suspect]
     Indication: NARCOLEPSY
     Dosage: 4.5 GM (2.25 GM, 2 IN 1 D), ORAL; 9 GM (4.5 GM, 2 IN 1 D), ORAL; 4.5 GM (4.5 GM, 1 IN 1 D), ORAL
     Route: 048
     Dates: start: 20081202
  4. LEVOTHYROXINE SODIUM [Concomitant]
  5. CETIRIZINE [Concomitant]
  6. CALCIUM [Concomitant]
  7. AMPHETAMINE AND DEXTROAMPHETAMINE SALTS [Concomitant]
  8. TRAZODONE HCL [Concomitant]
  9. CITALOPRAM HYDROBROMIDE [Concomitant]

REACTIONS (4)
  - HAEMOPTYSIS [None]
  - PNEUMONIA [None]
  - RESUSCITATION [None]
  - THROMBOSIS [None]
